FAERS Safety Report 15753624 (Version 1)
Quarter: 2018Q4

REPORT INFORMATION
  Report Type: Spontaneous
  Country: US (occurrence: US)
  Receive Date: 20181222
  Receipt Date: 20181222
  Transmission Date: 20190205
  Serious: No
  Sender: FDA-Public Use
  Company Number: US-BAYER-2018-239886

PATIENT

DRUGS (1)
  1. ALIQOPA [Suspect]
     Active Substance: COPANLISIB

REACTIONS (1)
  - Hyperglycaemia [None]
